FAERS Safety Report 6877210-7 (Version None)
Quarter: 2010Q3

REPORT INFORMATION
  Report Type: 
  Country: None (occurrence: None)
  Receive Date: 20100727
  Receipt Date: 20100222
  Transmission Date: 20110219
  Serious: No
  Sender: FDA-Public Use
  Company Number: US-ABBOTT-08P-163-0460896-00

PATIENT
  Sex: Female

DRUGS (3)
  1. SYNTHROID [Suspect]
     Indication: HYPOTHYROIDISM
     Route: 048
     Dates: start: 19800101
  2. SYNTHROID [Suspect]
     Route: 048
  3. LEVOTHYROXINE [Suspect]
     Indication: HYPOTHYROIDISM

REACTIONS (3)
  - ALOPECIA [None]
  - HAIR GROWTH ABNORMAL [None]
  - PRURITUS [None]
